FAERS Safety Report 22920923 (Version 7)
Quarter: 2023Q4

REPORT INFORMATION
  Report Type: Spontaneous
  Country: US (occurrence: US)
  Receive Date: 20230908
  Receipt Date: 20231124
  Transmission Date: 20240110
  Serious: No
  Sender: FDA-Public Use
  Company Number: US-UNITED THERAPEUTICS-UNT-2023-020536

PATIENT
  Sex: Male

DRUGS (5)
  1. REMODULIN [Suspect]
     Active Substance: TREPROSTINIL
     Indication: Pulmonary arterial hypertension
     Dosage: 0.04013 ?G/KG, CONTINUING
     Route: 058
     Dates: start: 2023
  2. REMODULIN [Suspect]
     Active Substance: TREPROSTINIL
     Dosage: UNK, CONTINUING
     Route: 058
     Dates: start: 202301
  3. REMODULIN [Suspect]
     Active Substance: TREPROSTINIL
     Indication: Pulmonary arterial hypertension
     Dosage: 0.04013 ?G/KG, CONTINUING
     Route: 058
     Dates: start: 2023
  4. REMODULIN [Suspect]
     Active Substance: TREPROSTINIL
     Dosage: (ESTIMATED TO BE 0.04249 ?G/KG), AT A PUMP RATE OF 18UL/HR.,CONTINUING
     Route: 058
     Dates: start: 2023
  5. REMODULIN [Suspect]
     Active Substance: TREPROSTINIL
     Dosage: UNK, CONTINUING
     Route: 058
     Dates: start: 2023

REACTIONS (13)
  - Infusion site pruritus [Recovered/Resolved]
  - Pruritus [Recovered/Resolved]
  - Skin irritation [Recovered/Resolved]
  - Hypersensitivity [Recovered/Resolved]
  - Infusion site pain [Recovered/Resolved]
  - Infusion site swelling [Recovered/Resolved]
  - Limb injury [Recovered/Resolved]
  - Device maintenance issue [Not Recovered/Not Resolved]
  - Intentional medical device removal by patient [Not Recovered/Not Resolved]
  - Infusion site warmth [Recovered/Resolved]
  - Dermatitis contact [Recovered/Resolved]
  - Infusion site discharge [Recovered/Resolved]
  - Treatment noncompliance [Unknown]

NARRATIVE: CASE EVENT DATE: 20230101
